FAERS Safety Report 8542296-0 (Version None)
Quarter: 2012Q3

REPORT INFORMATION
  Report Type: 
  Country: None (occurrence: None)
  Receive Date: 20120726
  Receipt Date: 20120723
  Transmission Date: 20120928
  Serious: No
  Sender: FDA-Public Use
  Company Number: US-PFIZER INC-2012178774

PATIENT
  Age: 62 Year
  Sex: Female
  Weight: 73 kg

DRUGS (2)
  1. ATORVASTATIN CALCIUM [Suspect]
     Indication: HYPERTENSION
     Dosage: 80 MG, DAILY
     Dates: start: 20120101, end: 20120101
  2. ATENOLOL [Concomitant]
     Indication: HYPERTENSION
     Dosage: 60 MG, DAILY

REACTIONS (3)
  - HYPERSENSITIVITY [None]
  - ABDOMINAL DISCOMFORT [None]
  - DIARRHOEA [None]
